FAERS Safety Report 8335420-6 (Version None)
Quarter: 2012Q2

REPORT INFORMATION
  Report Type: 
  Country: None (occurrence: None)
  Receive Date: 20120503
  Receipt Date: 20120501
  Transmission Date: 20120825
  Serious: Yes (Life-Threatening, Hospitalization)
  Sender: FDA-Public Use
  Company Number: JP-GILEAD-E2B_00001044

PATIENT
  Sex: Female

DRUGS (22)
  1. PREDNISOLONE ACETATE [Concomitant]
     Route: 048
  2. URSO                               /00465701/ [Concomitant]
     Route: 048
  3. ASPARTIC ACID [Concomitant]
     Indication: PROPHYLAXIS
  4. ALDACTONE [Concomitant]
     Route: 048
  5. GLAKAY [Concomitant]
     Indication: PROPHYLAXIS
     Route: 048
  6. GLAKAY [Concomitant]
     Route: 048
  7. LOXONIN [Concomitant]
     Route: 048
  8. MAGMITT [Concomitant]
     Route: 048
  9. LANSOPRAZOLE [Concomitant]
     Route: 048
  10. FLOLAN [Suspect]
     Indication: PULMONARY ARTERIAL HYPERTENSION
     Route: 042
     Dates: end: 20101129
  11. FUROSEMIDE [Concomitant]
     Route: 048
  12. FUROSEMIDE [Concomitant]
     Route: 048
  13. MUCOSTA [Concomitant]
     Indication: PROPHYLAXIS
     Route: 048
  14. AMBRISENTAN [Suspect]
     Indication: PULMONARY HYPERTENSION
     Dosage: UNK UNK, QD
     Route: 048
     Dates: start: 20101019, end: 20101224
  15. FLOLAN [Suspect]
     Dates: start: 20101130
  16. MUCOSTA [Concomitant]
     Route: 048
  17. LOXONIN [Concomitant]
     Route: 048
  18. LANSOPRAZOLE [Concomitant]
     Route: 048
  19. PREDNISOLONE ACETATE [Concomitant]
     Indication: SCLERODERMA
     Route: 048
  20. ALDACTONE [Concomitant]
     Indication: PROPHYLAXIS
     Route: 048
  21. REVATIO [Suspect]
     Indication: PULMONARY HYPERTENSION
     Route: 048
  22. MAGMITT [Concomitant]
     Route: 048

REACTIONS (3)
  - CARDIAC FAILURE [None]
  - ANAEMIA [None]
  - PULMONARY ALVEOLAR HAEMORRHAGE [None]
